FAERS Safety Report 14641975 (Version 1)
Quarter: 2018Q1

REPORT INFORMATION
  Report Type: Spontaneous
  Country: US (occurrence: US)
  Receive Date: 20180315
  Receipt Date: 20180315
  Transmission Date: 20180509
  Serious: No
  Sender: FDA-Public Use
  Company Number: None

PATIENT
  Age: 74 Year
  Sex: Female

DRUGS (7)
  1. LEVOTHYROXINE 0.05MG [Concomitant]
     Active Substance: LEVOTHYROXINE
     Dates: start: 20160613
  2. LANTUS SOLOSTAR [Suspect]
     Active Substance: INSULIN GLARGINE
     Route: 058
     Dates: start: 20180311, end: 20180313
  3. ATORVASTATIN 40MG [Concomitant]
     Active Substance: ATORVASTATIN
     Dates: start: 20161013
  4. LOSARTAN 100MG [Concomitant]
     Active Substance: LOSARTAN
     Dates: start: 20161205
  5. METFORMIN [Concomitant]
     Active Substance: METFORMIN HYDROCHLORIDE
     Dates: start: 20160603
  6. GLIMEPIRIDE 2MG [Concomitant]
     Active Substance: GLIMEPIRIDE
     Dates: start: 20170705
  7. PANTOPRAZOLE 40MG [Concomitant]
     Active Substance: PANTOPRAZOLE SODIUM
     Dates: start: 20161205

REACTIONS (4)
  - Injection site warmth [None]
  - Injection site hypersensitivity [None]
  - Injection site pruritus [None]
  - Injection site mass [None]

NARRATIVE: CASE EVENT DATE: 20180314
